FAERS Safety Report 6455161-X (Version None)
Quarter: 2009Q4

REPORT INFORMATION
  Report Type: 
  Country: None (occurrence: None)
  Receive Date: 20091119
  Receipt Date: 20091110
  Transmission Date: 20100525
  Serious: Yes (Other)
  Sender: FDA-Public Use
  Company Number: 2009SP029061

PATIENT
  Age: 50 Year
  Sex: Female
  Weight: 66.6788 kg

DRUGS (4)
  1. DR. SCHOLL'S MASSAGING GEL ARCH SUPPORTS [Suspect]
     Indication: FOOT DEFORMITY
     Dosage: UNK
  2. ELAVIL [Concomitant]
  3. MOTRIN [Concomitant]
  4. MULTI-VITAMIN [Concomitant]

REACTIONS (3)
  - FATIGUE [None]
  - FIBULA FRACTURE [None]
  - LIGAMENT INJURY [None]
